FAERS Safety Report 8377170-6 (Version None)
Quarter: 2012Q2

REPORT INFORMATION
  Report Type: 
  Country: None (occurrence: None)
  Receive Date: 20120522
  Receipt Date: 20120411
  Transmission Date: 20120825
  Serious: No
  Sender: FDA-Public Use
  Company Number: US-ASTRAZENECA-2012SE23942

PATIENT
  Age: 61 Year
  Sex: Female

DRUGS (2)
  1. CALCIUM CARBONATE [Concomitant]
  2. NEXIUM [Suspect]
     Dosage: ONCE A DAY
     Route: 048

REACTIONS (5)
  - SLEEP DISORDER DUE TO A GENERAL MEDICAL CONDITION [None]
  - REGURGITATION [None]
  - DYSPHAGIA [None]
  - DYSPEPSIA [None]
  - INTENTIONAL DRUG MISUSE [None]
